FAERS Safety Report 24339584 (Version 3)
Quarter: 2024Q4

REPORT INFORMATION
  Report Type: Spontaneous
  Country: DE (occurrence: DE)
  Receive Date: 20240919
  Receipt Date: 20241112
  Transmission Date: 20250115
  Serious: Yes (Hospitalization, Other)
  Sender: FRESENIUS KABI
  Company Number: DE-SAMSUNG BIOEPIS-SB-2024-24612

PATIENT
  Age: 76 Year
  Sex: Male
  Weight: 81 kg

DRUGS (18)
  1. LEUCOVORIN [Suspect]
     Active Substance: LEUCOVORIN\LEUCOVORIN CALCIUM
     Indication: HER2 positive gastric cancer
     Dosage: 200 MG/M2, IV, D1/D15/D29 AND D43 PRE-AND POST OP
     Route: 042
     Dates: start: 20240318
  2. LEUCOVORIN [Suspect]
     Active Substance: LEUCOVORIN\LEUCOVORIN CALCIUM
     Indication: Oesophageal adenocarcinoma
     Route: 042
     Dates: start: 20240820
  3. LEUCOVORIN [Suspect]
     Active Substance: LEUCOVORIN\LEUCOVORIN CALCIUM
     Dosage: 200 MG/M2, IV, D1/D15/D29 AND D43 PRE- AND POST OP. DOSE GIVEN BEFORE EVENT ONSET WAS 300 MG;
     Route: 042
     Dates: start: 20240318
  4. OXALIPLATIN [Suspect]
     Active Substance: OXALIPLATIN
     Indication: HER2 positive gastric cancer
     Dosage: 85 MG/M2, IV, D1/D15/D29 AND D43 PRE-AND POST OP
     Route: 042
     Dates: start: 20240318
  5. OXALIPLATIN [Suspect]
     Active Substance: OXALIPLATIN
     Indication: Oesophageal adenocarcinoma
     Route: 042
  6. OXALIPLATIN [Suspect]
     Active Substance: OXALIPLATIN
     Dosage: 85 MG/M2, IV, D1/D15/D29 AND D43 PRE- AND POST OP. DOSE GIVEN BEFORE ONSET OF EVENT WAS 125 MG;
     Route: 042
     Dates: start: 20240318
  7. PEMBROLIZUMAB [Suspect]
     Active Substance: PEMBROLIZUMAB
     Indication: HER2 positive gastric cancer
     Dosage: 200 MG FLAT DOSE, D1/D22/D43 POST OP, AFTERWARDS D1 Q3W
     Route: 042
     Dates: start: 20240318, end: 20240819
  8. PEMBROLIZUMAB [Suspect]
     Active Substance: PEMBROLIZUMAB
     Indication: Oesophageal adenocarcinoma
  9. DOCETAXEL [Suspect]
     Active Substance: DOCETAXEL
     Indication: HER2 positive gastric cancer
     Dosage: 50 MG/M2, IV, D1/D15/D29 AND D43 PRE-AND POST OP
     Route: 042
     Dates: start: 20240318
  10. DOCETAXEL [Suspect]
     Active Substance: DOCETAXEL
     Indication: Oesophageal adenocarcinoma
     Dosage: 50 MG/M2, IV, D1/D15/D29 AND D43 PRE- AND POST OP. DOSE GIVEN BEFORE EVENT ONSET WAS 74 MG;
     Route: 042
     Dates: start: 20240820
  11. DOCETAXEL [Suspect]
     Active Substance: DOCETAXEL
     Dosage: 50 MG/M2, IV, D1/D15/D29 AND D43 PRE- AND POST OP. DOSE GIVEN BEFORE EVENT ONSET WAS 74 MG;
     Dates: start: 20240318
  12. ONTRUZANT [Suspect]
     Active Substance: TRASTUZUMAB-DTTB
     Indication: Oesophageal adenocarcinoma
     Dosage: D1 8MG/KG IV 6MG/KG IV D22/D43 PRE AND POST OP, AFTERWARDS 6 MG/KG IV D1 Q3W;
     Route: 042
     Dates: start: 20240318
  13. ONTRUZANT [Suspect]
     Active Substance: TRASTUZUMAB-DTTB
     Indication: HER2 positive gastric cancer
     Route: 042
     Dates: start: 20240819
  14. ONTRUZANT [Suspect]
     Active Substance: TRASTUZUMAB-DTTB
     Dosage: 6MG/KG IV D22/D43 PRE- AND POST OP, AFTERWARDS 6MG/KG IV D1 Q3W. DOSE GIVEN BEFORE ONSET OF EVENT WA
     Route: 042
  15. ONTRUZANT [Suspect]
     Active Substance: TRASTUZUMAB-DTTB
     Dosage: D1: 8 MG/KG, IV; 6 MG/KG IV D22/D43 PRE-AND POST OP, AFTERWARDS 6 MG/KG IV D1/ Q3W
     Route: 042
     Dates: start: 20240318
  16. FLUOROURACIL [Suspect]
     Active Substance: FLUOROURACIL
     Indication: Oesophageal adenocarcinoma
     Dosage: 2600 MG/M2, IV, D1/D15/D29 AND D43 PRE- AND POST OP. DOSE GIVEN BEFORE EVENT ONSET WAS 3800 MG;
     Route: 042
     Dates: start: 20240318
  17. FLUOROURACIL [Suspect]
     Active Substance: FLUOROURACIL
     Indication: HER2 positive gastric cancer
     Dosage: 2600 MG/M2, IV, D1/D15/D29 AND D43 PRE- AND POST OP. DOSE GIVEN BEFORE EVENT ONSET WAS 3800 MG;
     Route: 042
     Dates: start: 20240318
  18. FLUOROURACIL [Suspect]
     Active Substance: FLUOROURACIL
     Dosage: 2600 MG/M2, IV, D1/D15/D29 AND D43 PRE- AND POST OP. DOSE GIVEN BEFORE EVENT ONSET WAS 3800 MG;
     Route: 042
     Dates: start: 20240820

REACTIONS (5)
  - Acute myocardial infarction [Recovered/Resolved]
  - Immune-mediated myocarditis [Recovered/Resolved]
  - Urinary tract infection [Recovered/Resolved]
  - Coronary artery disease [Unknown]
  - Off label use [Unknown]

NARRATIVE: CASE EVENT DATE: 20240805
